FAERS Safety Report 7243469-X (Version None)
Quarter: 2011Q1

REPORT INFORMATION
  Report Type: 
  Country: None (occurrence: None)
  Receive Date: 20110125
  Receipt Date: 20110118
  Transmission Date: 20110831
  Serious: Yes (Death, Life-Threatening, Hospitalization)
  Sender: FDA-Public Use
  Company Number: BE-ELI_LILLY_AND_COMPANY-BE201011001835

PATIENT
  Sex: Male
  Weight: 79.5 kg

DRUGS (7)
  1. PEMETREXED [Suspect]
     Indication: HEAD AND NECK CANCER
     Dosage: 500 MG/M2, DAY ONE EVERY 21 DAYS
     Route: 042
     Dates: start: 20101028
  2. CETUXIMAB [Suspect]
     Indication: HEAD AND NECK CANCER
     Dosage: 400 MG/M2, DAY ONE CYCLE ONE
     Route: 042
     Dates: start: 20101028, end: 20101028
  3. FOLIC ACID [Concomitant]
     Indication: PROPHYLAXIS
     Dosage: UNK, UNK
     Dates: start: 20101020, end: 20101107
  4. CISPLATIN [Suspect]
     Indication: HEAD AND NECK CANCER
     Dosage: 75 MG/M2, DAY ONE EVERY 21 DAYS
     Route: 042
     Dates: start: 20101028
  5. DEXAMETHASONE [Concomitant]
     Indication: PROPHYLAXIS
     Dosage: UNK, UNK
     Dates: start: 20101027, end: 20101107
  6. CETUXIMAB [Suspect]
     Dosage: 250 MG/M2, WEEKLY
     Route: 042
     Dates: start: 20101104
  7. VITAMIN B-12 [Concomitant]
     Indication: PROPHYLAXIS
     Dosage: UNK, UNK
     Dates: start: 20101020, end: 20101107

REACTIONS (3)
  - THROMBOCYTOPENIA [None]
  - SEPSIS [None]
  - FEBRILE NEUTROPENIA [None]
